FAERS Safety Report 14220555 (Version 1)
Quarter: 2017Q4

REPORT INFORMATION
  Report Type: Spontaneous
  Country: FR (occurrence: FR)
  Receive Date: 20171124
  Receipt Date: 20171124
  Transmission Date: 20180321
  Serious: Yes (Disabling)
  Sender: FDA-Public Use
  Company Number: PHHY2017FR171058

PATIENT
  Age: 55 Year
  Sex: Female

DRUGS (1)
  1. GABAPENTIN SANDOZ [Suspect]
     Active Substance: GABAPENTIN
     Indication: MYELITIS
     Dosage: 400 MG, TID
     Route: 048
     Dates: start: 20170724

REACTIONS (2)
  - Depression [Recovered/Resolved]
  - Balance disorder [Recovered/Resolved]

NARRATIVE: CASE EVENT DATE: 20170801
